FAERS Safety Report 9280469 (Version 1)
Quarter: 2013Q2

REPORT INFORMATION
  Report Type: Spontaneous
  Country: US (occurrence: None)
  Receive Date: 20130503
  Receipt Date: 20130503
  Transmission Date: 20140414
  Serious: Yes (Life-Threatening)
  Sender: FDA-Public Use
  Company Number: LMI-2013-00155

PATIENT
  Sex: Female
  Weight: 76.66 kg

DRUGS (3)
  1. DEFINITY [Suspect]
     Indication: ECHOCARDIOGRAM
     Dosage: 1 VIAL DEFINITY DILUTED WITH 8 ML NORMAL SALINE (3 ML, INTRAVENOUS BOLUS)
     Dates: start: 20130417, end: 20130417
  2. BETA BLOCKER [Concomitant]
  3. ACE INHIBITOR [Concomitant]

REACTIONS (6)
  - Nausea [None]
  - Presyncope [None]
  - Convulsion [None]
  - Unresponsive to stimuli [None]
  - Pulse absent [None]
  - Blood pressure immeasurable [None]
